FAERS Safety Report 9922703 (Version 1)
Quarter: 2014Q1

REPORT INFORMATION
  Report Type: Spontaneous
  Country: DK (occurrence: DK)
  Receive Date: 20140225
  Receipt Date: 20140225
  Transmission Date: 20141002
  Serious: Yes (Death)
  Sender: FDA-Public Use
  Company Number: DK-UCBSA-113029

PATIENT
  Age: 43 Year
  Sex: Male
  Weight: 81.5 kg

DRUGS (3)
  1. ZAROXOLYN [Suspect]
     Indication: OEDEMA
     Dosage: DOSE: 2.5 MG X 3 WEEK
     Route: 048
     Dates: start: 20130220, end: 20130220
  2. ZAROXOLYN [Suspect]
     Indication: FLUID OVERLOAD
     Dosage: DOSE: 2.5 MG X 3 WEEK
     Route: 048
     Dates: start: 20130220, end: 20130220
  3. FUROSEMIDE [Concomitant]
     Dosage: UNKNOWN

REACTIONS (8)
  - Asphyxia [Fatal]
  - Aspiration [Fatal]
  - Fluid overload [Fatal]
  - Pulmonary oedema [Fatal]
  - Hypotension [Recovered/Resolved]
  - Weight decreased [Recovered/Resolved]
  - Diabetic gastropathy [Unknown]
  - Vomiting [Unknown]
